FAERS Safety Report 19581040 (Version 2)
Quarter: 2021Q3

REPORT INFORMATION
  Report Type: Spontaneous
  Country: AT (occurrence: AT)
  Receive Date: 20210719
  Receipt Date: 20210726
  Transmission Date: 20211014
  Serious: Yes (Other)
  Sender: FDA-Public Use
  Company Number: NVSC2021AT157930

PATIENT
  Age: 57 Year
  Sex: Female

DRUGS (5)
  1. XYLONEURAL [Suspect]
     Active Substance: LIDOCAINE HYDROCHLORIDE
     Indication: PRODUCT USED FOR UNKNOWN INDICATION
     Dosage: UNK
     Route: 065
  2. PANTOPRAZOLE [Suspect]
     Active Substance: PANTOPRAZOLE
     Indication: PRODUCT USED FOR UNKNOWN INDICATION
     Dosage: UNK
     Route: 065
  3. VOLTAREN [Suspect]
     Active Substance: DICLOFENAC SODIUM
     Indication: PRODUCT USED FOR UNKNOWN INDICATION
     Dosage: UNK
     Route: 065
  4. DAFLON (DIOSMIN) [Concomitant]
     Active Substance: DIOSMIN
     Indication: PRODUCT USED FOR UNKNOWN INDICATION
     Dosage: UNK
     Route: 065
  5. THYREX [Concomitant]
     Active Substance: LEVOTHYROXINE SODIUM
     Indication: PRODUCT USED FOR UNKNOWN INDICATION
     Dosage: UNK
     Route: 065

REACTIONS (10)
  - Neck pain [Unknown]
  - Ear pruritus [Unknown]
  - Pruritus [Unknown]
  - Petechiae [Unknown]
  - Piloerection [Recovered/Resolved]
  - Arthralgia [Unknown]
  - Vasculitis [Unknown]
  - Thrombocytopenia [Recovered/Resolved]
  - Peripheral swelling [Unknown]
  - Body temperature increased [Recovered/Resolved]

NARRATIVE: CASE EVENT DATE: 20210513
